FAERS Safety Report 20540550 (Version 1)
Quarter: 2022Q1

REPORT INFORMATION
  Report Type: Spontaneous
  Country: CA (occurrence: CA)
  Receive Date: 20220302
  Receipt Date: 20220302
  Transmission Date: 20220423
  Serious: Yes (Other)
  Sender: FDA-Public Use
  Company Number: CA-JNJFOC-20210946393

PATIENT
  Age: 49 Year
  Sex: Female
  Weight: 111 kg

DRUGS (1)
  1. REMICADE [Suspect]
     Active Substance: INFLIXIMAB
     Indication: Crohn^s disease
     Route: 042

REACTIONS (16)
  - Schizophrenia [Unknown]
  - Anxiety [Unknown]
  - Crying [Unknown]
  - Fall [Unknown]
  - Joint injury [Unknown]
  - Malaise [Unknown]
  - Paranoia [Unknown]
  - Weight decreased [Unknown]
  - Joint swelling [Unknown]
  - Injection site discolouration [Unknown]
  - Injection site swelling [Unknown]
  - Condition aggravated [Unknown]
  - Pain [Unknown]
  - Off label use [Unknown]
  - Incorrect dose administered [Unknown]
  - Intentional product use issue [Unknown]
